FAERS Safety Report 21556384 (Version 5)
Quarter: 2023Q2

REPORT INFORMATION
  Report Type: Report from Study
  Country: US (occurrence: None)
  Receive Date: 20221104
  Receipt Date: 20230518
  Transmission Date: 20230722
  Serious: Yes (Hospitalization, Other)
  Sender: FDA-Public Use
  Company Number: US-Merck Healthcare KGaA-9357262

PATIENT
  Age: 50 Year
  Sex: Female

DRUGS (4)
  1. MAVENCLAD [Suspect]
     Active Substance: CLADRIBINE
     Indication: Multiple sclerosis
     Dosage: YEAR ONE MONTH ONE THERAPY: 20 MG ON DAY 1 AND 10 MG ON DAY 2 TO 5
     Route: 048
     Dates: start: 20221005
  2. MAVENCLAD [Suspect]
     Active Substance: CLADRIBINE
     Dosage: YEAR ONE MONTH TWO THERAPY.
     Route: 048
     Dates: start: 20230214, end: 20230218
  3. LAMICTAL [Concomitant]
     Active Substance: LAMOTRIGINE
     Indication: Seizure
  4. KEPPRA [Concomitant]
     Active Substance: LEVETIRACETAM
     Indication: Seizure

REACTIONS (22)
  - Vitamin K deficiency [Unknown]
  - Transfusion [Unknown]
  - Aura [Unknown]
  - Seizure [Not Recovered/Not Resolved]
  - Vomiting [Unknown]
  - Gastrointestinal disorder [Not Recovered/Not Resolved]
  - COVID-19 [Recovered/Resolved]
  - Fall [Unknown]
  - Asthenia [Unknown]
  - Nausea [Unknown]
  - Feeding disorder [Unknown]
  - Fluid intake reduced [Unknown]
  - Hypotension [Unknown]
  - Chromaturia [Unknown]
  - Mobility decreased [Not Recovered/Not Resolved]
  - Condition aggravated [Not Recovered/Not Resolved]
  - Urinary incontinence [Not Recovered/Not Resolved]
  - Anal incontinence [Not Recovered/Not Resolved]
  - Cognitive disorder [Not Recovered/Not Resolved]
  - Device dislocation [Unknown]
  - Device leakage [Not Recovered/Not Resolved]
  - Exposure to SARS-CoV-2 [Not Recovered/Not Resolved]

NARRATIVE: CASE EVENT DATE: 20221126
